FAERS Safety Report 9340298 (Version 1)
Quarter: 2013Q2

REPORT INFORMATION
  Report Type: Spontaneous
  Country: DE (occurrence: None)
  Receive Date: 20130605
  Receipt Date: 20130605
  Transmission Date: 20140414
  Serious: Yes (Hospitalization)
  Sender: FDA-Public Use
  Company Number: ACO_36591_2013

PATIENT
  Age: 49 Year
  Sex: Male

DRUGS (3)
  1. FAMPYRA (DALFAMPRIDINE) TABLET, 10MG [Suspect]
     Indication: MULTIPLE SCLEROSIS
     Route: 048
     Dates: start: 201106
  2. FAMPYRA (DALFAMPRIDINE) TABLET, 10MG [Suspect]
     Indication: GAIT DISTURBANCE
     Route: 048
     Dates: start: 201106
  3. AVONEX (INTERFERON BETA-1A) [Concomitant]

REACTIONS (5)
  - Fall [None]
  - Bursitis [None]
  - Gait disturbance [None]
  - Secondary progressive multiple sclerosis [None]
  - Arthritis [None]
